FAERS Safety Report 6880233-5 (Version None)
Quarter: 2010Q3

REPORT INFORMATION
  Report Type: 
  Country: None (occurrence: None)
  Receive Date: 20100728
  Receipt Date: 20100719
  Transmission Date: 20110219
  Serious: Yes (Hospitalization)
  Sender: FDA-Public Use
  Company Number: JP-SANOFI-AVENTIS-2010SA042217

PATIENT
  Age: 57 Year
  Sex: Male

DRUGS (8)
  1. ELPLAT [Suspect]
     Indication: COLON CANCER METASTATIC
     Route: 042
     Dates: start: 20090113, end: 20090113
  2. ELPLAT [Suspect]
     Route: 042
     Dates: start: 20090511, end: 20090511
  3. CALCIUM LEVOFOLINATE [Suspect]
     Indication: COLON CANCER METASTATIC
     Route: 042
     Dates: start: 20090113, end: 20090113
  4. CALCIUM LEVOFOLINATE [Suspect]
     Route: 042
     Dates: start: 20090512, end: 20090512
  5. FLUOROURACIL [Suspect]
     Indication: COLON CANCER METASTATIC
     Route: 042
     Dates: start: 20090113, end: 20090113
  6. FLUOROURACIL [Suspect]
     Route: 042
     Dates: start: 20090513, end: 20090513
  7. AVASTIN [Suspect]
     Indication: COLON CANCER METASTATIC
     Route: 041
     Dates: start: 20090127, end: 20090127
  8. AVASTIN [Suspect]
     Route: 041
     Dates: start: 20090511, end: 20090511

REACTIONS (1)
  - LIVER ABSCESS [None]
